FAERS Safety Report 8573710-2 (Version None)
Quarter: 2012Q3

REPORT INFORMATION
  Report Type: 
  Country: None (occurrence: None)
  Receive Date: 20120806
  Receipt Date: 20120730
  Transmission Date: 20120928
  Serious: Yes (Other)
  Sender: FDA-Public Use
  Company Number: US-GLAXOSMITHKLINE-A0987556A

PATIENT
  Age: 77 Year
  Sex: Female

DRUGS (9)
  1. TYLENOL W/ CODEINE [Concomitant]
     Indication: COUGH
  2. PROAIR HFA [Concomitant]
  3. ATENOLOL [Concomitant]
  4. TYLENOL PM [Concomitant]
  5. BENADRYL [Concomitant]
  6. XANAX [Concomitant]
  7. FLUTICASONE PROPIONATE [Suspect]
     Indication: ASTHMA
     Dosage: 1PUFF TWICE PER DAY
     Route: 055
     Dates: start: 20070701
  8. SIMVASTATIN [Concomitant]
  9. VITAMIN TAB [Concomitant]

REACTIONS (7)
  - INHALATION THERAPY [None]
  - DRUG INEFFECTIVE [None]
  - PRODUCT QUALITY ISSUE [None]
  - DYSPNOEA [None]
  - ASTHMA [None]
  - COUGH [None]
  - WHEEZING [None]
